FAERS Safety Report 7675558-X (Version None)
Quarter: 2011Q3

REPORT INFORMATION
  Report Type: 
  Country: None (occurrence: None)
  Receive Date: 20110810
  Receipt Date: 20110803
  Transmission Date: 20111222
  Serious: Yes (Hospitalization)
  Sender: FDA-Public Use
  Company Number: ES-B.I. PHARMACEUTICALS,INC./RIDGEFIELD-2011-ES-00180ES

PATIENT
  Age: 70 Year
  Sex: Female

DRUGS (7)
  1. LEVOTHYROXINE SODIUM [Concomitant]
     Indication: THYROID DISORDER
  2. TIAZIDA [Concomitant]
  3. MICARDIS HCT [Suspect]
     Indication: HYPERTENSION
     Dosage: STRENGHT 80/12.5
     Route: 048
     Dates: start: 20101110
  4. METFORMIN HCL [Concomitant]
     Indication: DIABETES MELLITUS
  5. DAFLON [Concomitant]
  6. SERMION [Concomitant]
  7. OMEPRAZOLE [Concomitant]

REACTIONS (2)
  - ARRHYTHMIA [None]
  - THROMBOSIS [None]
